FAERS Safety Report 22173949 (Version 1)
Quarter: 2023Q2

REPORT INFORMATION
  Report Type: Report from Study
  Country: US (occurrence: US)
  Receive Date: 20230404
  Receipt Date: 20230404
  Transmission Date: 20230721
  Serious: Yes (Death)
  Sender: FDA-Public Use
  Company Number: US-ABBVIE-4715294

PATIENT
  Sex: Female

DRUGS (65)
  1. VENCLEXTA [Suspect]
     Active Substance: VENETOCLAX
     Indication: Acute myeloid leukaemia
     Dosage: TAKE 1 TABLET PO ON DAY 1?FORM STRENGTH: 10 MG
     Route: 048
  2. VENCLEXTA [Suspect]
     Active Substance: VENETOCLAX
     Indication: Acute myeloid leukaemia
     Dosage: 14 DAYS FOLLOWED BY 14 DAYS OFF?FORM STRENGTH: 10 MG
     Route: 048
  3. VENCLEXTA [Suspect]
     Active Substance: VENETOCLAX
     Indication: Acute myeloid leukaemia
     Dosage: ON DAYS 1-14 OF EVERY 28 DAY CYCLE;  TAKE WITH 50MG TABLETS?FORM STRENGTH: 10 MG
     Route: 048
  4. VENCLEXTA [Suspect]
     Active Substance: VENETOCLAX
     Indication: Acute myeloid leukaemia
     Dosage: 2 TABS TAKEN TOGETHER WITH  50MG FOR TOTAL OF 70MG
     Route: 048
  5. VENCLEXTA [Suspect]
     Active Substance: VENETOCLAX
     Indication: Acute myeloid leukaemia
     Dosage: DAILY 2 WEEK(S) ON, 2 WEEK(S) OFF
     Route: 048
  6. VENCLEXTA [Suspect]
     Active Substance: VENETOCLAX
     Indication: Acute myeloid leukaemia
     Dosage: ON DAYS 1-14 OF EVERY 28 DAY CYCLE; TAKE  WITH 10MG TABLETS
     Route: 048
  7. VENCLEXTA [Suspect]
     Active Substance: VENETOCLAX
     Indication: Acute myeloid leukaemia
     Dosage: (TAKE ALONG WITH ONE 50MG TABLET FOR TOTAL DOSE OF  70MG DAILY)
     Route: 048
  8. VENCLEXTA [Suspect]
     Active Substance: VENETOCLAX
     Indication: Acute myeloid leukaemia
     Dosage: TAKE ALONG WITH TWO 10MG TABLETS FOR TOTAL DOSE OF  70MG DAILY
     Route: 048
  9. VENCLEXTA [Suspect]
     Active Substance: VENETOCLAX
     Indication: Acute myeloid leukaemia
     Dosage: 2 TAB PO ON DAY2
     Route: 048
  10. Sodium Chloride 0.9% 250ml [Concomitant]
     Indication: Product used for unknown indication
     Dosage: 25ML/HR INFUSION?FORM STRENGTH: 3 MG
     Route: 042
     Dates: start: 20210502, end: 20210502
  11. Sodium Chloride 0.9% 250ml [Concomitant]
     Indication: Product used for unknown indication
     Dosage: 25ML/HR INFUSION?FORM STRENGTH: 3 MG
     Route: 042
     Dates: start: 20210509, end: 20210509
  12. PANTOPRAZOLE [Concomitant]
     Active Substance: PANTOPRAZOLE
     Indication: Product used for unknown indication
     Dosage: FORM STRENGTH: 40 MG
     Route: 048
  13. PANTOPRAZOLE [Concomitant]
     Active Substance: PANTOPRAZOLE
     Indication: Product used for unknown indication
     Dosage: FORM STRENGTH: 40 MG
     Route: 048
     Dates: start: 20210430
  14. HYDROCHLOROTHIAZIDE [Concomitant]
     Active Substance: HYDROCHLOROTHIAZIDE
     Indication: Product used for unknown indication
     Dosage: FORM STRENGTH: 25 MG
     Route: 048
  15. LIDOCAINE [Concomitant]
     Active Substance: LIDOCAINE
     Indication: Product used for unknown indication
     Dosage: FORM STRENGTH: 5 MG
     Route: 042
     Dates: start: 20210430, end: 20210430
  16. Peri Colace [Concomitant]
     Indication: Product used for unknown indication
     Dosage: 2 TAB(S) PO QDAY
     Route: 048
     Dates: start: 20210507
  17. ACYCLOVIR [Concomitant]
     Active Substance: ACYCLOVIR
     Indication: Product used for unknown indication
     Dosage: FORM STRENGTH: 400 MG
     Route: 048
     Dates: start: 20210504
  18. ACETAMINOPHEN [Concomitant]
     Active Substance: ACETAMINOPHEN
     Indication: Pyrexia
     Dosage: 1 TAB(S) PO Q8HR PRN AS NEEDED FOR?FORM STRENGTH: 500 MG
     Route: 048
  19. BENADRYL [Concomitant]
     Active Substance: DIPHENHYDRAMINE HYDROCHLORIDE
     Indication: Product used for unknown indication
     Route: 042
     Dates: start: 20170525
  20. posaconazole EC [Concomitant]
     Indication: Product used for unknown indication
     Dosage: 300 MG WITH FOOD?FORM STRENGTH: 300 MG
     Route: 048
     Dates: start: 20210504
  21. SYMBICORT [Concomitant]
     Active Substance: BUDESONIDE\FORMOTEROL FUMARATE DIHYDRATE
     Indication: Product used for unknown indication
     Dosage: 1 PUFF INH BID
     Route: 055
     Dates: start: 20210430
  22. SYMBICORT [Concomitant]
     Active Substance: BUDESONIDE\FORMOTEROL FUMARATE DIHYDRATE
     Indication: Product used for unknown indication
     Dosage: 1 PUFF INH QDAY
     Route: 055
  23. Narcan Dilution [Concomitant]
     Indication: Respiratory depression
     Dosage: 0.04MG=1ML PUSH
     Dates: start: 20170425
  24. Narcan Dilution [Concomitant]
     Indication: Respiratory depression
     Dosage: 0.04MG=1ML PUSH
     Route: 042
     Dates: start: 20170430
  25. Plasma-Iyte/Normosol-R/Isolyte S [Concomitant]
     Indication: Product used for unknown indication
     Route: 042
     Dates: start: 20210430
  26. PERFOROMIST [Concomitant]
     Active Substance: FORMOTEROL FUMARATE DIHYDRATE
     Indication: Product used for unknown indication
     Dosage: FORM STRENGTH: 20 MG
     Route: 055
     Dates: start: 20210430
  27. ENOXAPARIN [Concomitant]
     Active Substance: ENOXAPARIN
     Indication: Product used for unknown indication
     Dosage: 80MG SOLUTIONS
     Route: 058
     Dates: start: 20210502
  28. MORPHINE [Concomitant]
     Active Substance: MORPHINE
     Indication: Product used for unknown indication
     Dosage: 4MG=1ML PUSH?FORM STRENGTH: 4 MG
     Route: 042
     Dates: start: 20170525
  29. TRETINOIN [Concomitant]
     Active Substance: TRETINOIN
     Indication: Product used for unknown indication
     Dosage: FORM STRENGTH: 40 GRAM
     Route: 048
     Dates: start: 20210501
  30. NARCAN [Concomitant]
     Active Substance: NALOXONE HYDROCHLORIDE
     Indication: Respiratory depression
     Dosage: 0.4MG=1ML
     Route: 058
     Dates: start: 20210430
  31. NARCAN [Concomitant]
     Active Substance: NALOXONE HYDROCHLORIDE
     Indication: Respiratory depression
     Dosage: 0.4MG=1ML
     Route: 058
     Dates: start: 201707
  32. ZOFRAN [Concomitant]
     Active Substance: ONDANSETRON HYDROCHLORIDE
     Indication: Nausea
     Dosage: 4MG=2ML TAB?FORM STRENGTH: 2 MG
     Route: 048
     Dates: start: 20210430
  33. Saline Flush Range Dose [Concomitant]
     Indication: Product used for unknown indication
     Dosage: FORM STRENGTH: 3 MG
     Route: 042
     Dates: start: 20210505
  34. Saline Flush Range Dose [Concomitant]
     Indication: Product used for unknown indication
     Dosage: 10-60ML PUSH SALINE?FORM STRENGTH: 3 MG
     Route: 042
     Dates: start: 20210505
  35. MIRALAX [Concomitant]
     Active Substance: POLYETHYLENE GLYCOL 3350
     Indication: Constipation
     Dosage: 1 PACKET = 17GM POWDER FOR RECONSTITUTION
     Route: 048
     Dates: start: 20210507
  36. Normal Saline 0.9% Infusion 1000ml [Concomitant]
     Indication: Product used for unknown indication
     Dosage: 100ML/HR INFUSION?FORM STRENGTH: 100 MG
     Route: 042
     Dates: start: 20210504
  37. Normal Saline 0.9% Infusion 1000ml [Concomitant]
     Indication: Product used for unknown indication
     Dosage: 100ML/HR INFUSION?FORM STRENGTH: 100 MG
     Dates: start: 20210508
  38. HYDREA [Concomitant]
     Active Substance: HYDROXYUREA
     Indication: Product used for unknown indication
     Dosage: FORM STRENGTH: 1000 MG
     Route: 048
     Dates: start: 20210406
  39. Sodium Chloride Peripheral Flush [Concomitant]
     Indication: Product used for unknown indication
     Dosage: 3ML IV PUSH SALINE?FORM STRENGTH: 3 MG
     Route: 042
     Dates: start: 20210430
  40. Sodium Chloride Peripheral Flush [Concomitant]
     Indication: Product used for unknown indication
     Dosage: 3ML IV PUSH SALINE?FORM STRENGTH: 3 MG
     Route: 042
     Dates: start: 20210430
  41. MAALOX ANTACID [Concomitant]
     Active Substance: ALUMINUM HYDROXIDE\DIMETHICONE\MAGNESIUM HYDROXIDE
     Indication: Dyspepsia
     Route: 048
     Dates: start: 20210430
  42. DILAUDID [Concomitant]
     Active Substance: HYDROMORPHONE HYDROCHLORIDE
     Indication: Pain management
     Dosage: 0.4MG=0.4ML PUSH
     Route: 042
     Dates: start: 20210430
  43. DILAUDID [Concomitant]
     Active Substance: HYDROMORPHONE HYDROCHLORIDE
     Indication: Pain management
     Dosage: 0.2MG=0,2ML PUSH
     Route: 042
     Dates: start: 20210430
  44. Dulcolax Laxative EC [Concomitant]
     Indication: Constipation
     Dosage: FORM STRENGTH: 10 MG
     Route: 054
     Dates: start: 20210507
  45. Dulcolax Laxative EC [Concomitant]
     Indication: Constipation
     Dosage: FORM STRENGTH: 10 MG
     Route: 048
     Dates: start: 20210507
  46. ALLOPURINOL [Concomitant]
     Active Substance: ALLOPURINOL
     Indication: Product used for unknown indication
     Dosage: STRENGTH: 300 MG
     Route: 048
     Dates: start: 20210503
  47. FUROSEMIDE [Concomitant]
     Active Substance: FUROSEMIDE
     Indication: Product used for unknown indication
     Dosage: FORM STRENGTH: 40 MG
     Route: 042
     Dates: start: 20210508, end: 20210508
  48. FUROSEMIDE [Concomitant]
     Active Substance: FUROSEMIDE
     Indication: Product used for unknown indication
     Dosage: 40MG SOLUTION?FORM STRENGTH: 40 MG
     Route: 042
     Dates: start: 20210508
  49. FLEXERIL [Concomitant]
     Active Substance: CYCLOBENZAPRINE HYDROCHLORIDE
     Indication: Muscle spasms
     Dosage: TIME INTERVAL: 0.33333333 DAYS: FORM STRENGTH: 5 MG
     Route: 048
     Dates: start: 20210430
  50. OXYCODONE [Concomitant]
     Active Substance: OXYCODONE
     Indication: Pain management
     Dosage: FORM STRENGTH: 5 MG
     Route: 048
     Dates: start: 20210403
  51. MAGNESIUM CITRATE [Concomitant]
     Active Substance: MAGNESIUM CITRATE
     Indication: Constipation
     Dosage: 300ML SOLUTION
     Dates: start: 20210407
  52. GADOTERIDOL [Concomitant]
     Active Substance: GADOTERIDOL
     Indication: Product used for unknown indication
     Dosage: 4468.8MG SOLUTION
     Route: 042
     Dates: start: 20170425, end: 20170425
  53. PROPOFOL [Concomitant]
     Active Substance: PROPOFOL
     Indication: Product used for unknown indication
     Dosage: 10ML IV INFUSION, EMULSION?FORM STRENGTH: 10 MG
     Route: 042
     Dates: start: 20210430, end: 20210430
  54. potassium 10meq for peripheral line [Concomitant]
     Indication: Product used for unknown indication
     Route: 042
     Dates: start: 20210430, end: 20210430
  55. COMPAZINE [Concomitant]
     Active Substance: PROCHLORPERAZINE MALEATE
     Indication: Nausea
     Dosage: 10MG=2ML INFUSION
     Route: 042
     Dates: start: 20170525, end: 20170525
  56. COMPAZINE [Concomitant]
     Active Substance: PROCHLORPERAZINE MALEATE
     Indication: Nausea
     Dosage: 5MG=1ML PUSH
     Route: 042
  57. Dextrose 5%-0.45%NACL / KCL 20meq/ L 1000ml [Concomitant]
     Indication: Product used for unknown indication
     Dosage: 75ML/HR INFUSION
     Route: 042
     Dates: start: 20210430
  58. IBUPROFEN [Concomitant]
     Active Substance: IBUPROFEN
     Indication: Pain
     Dosage: FORM STRENGTH: 200 MG
     Route: 048
  59. LISINOPRIL [Concomitant]
     Active Substance: LISINOPRIL
     Indication: Product used for unknown indication
     Dosage: FORM STRENGTH: 5 MG
     Route: 048
  60. GABAPENTIN [Concomitant]
     Active Substance: GABAPENTIN
     Indication: Product used for unknown indication
     Route: 048
     Dates: start: 20210430
  61. POTASSIUM CHLORIDE [Concomitant]
     Active Substance: POTASSIUM CHLORIDE
     Indication: Product used for unknown indication
     Dates: start: 20210508
  62. LEVOFLOXACIN [Concomitant]
     Active Substance: LEVOFLOXACIN
     Indication: Product used for unknown indication
     Dosage: FORM STRENGTH: 500 MG
     Route: 048
     Dates: start: 20210504
  63. TYLENOL [Concomitant]
     Active Substance: ACETAMINOPHEN
     Indication: Pain management
     Dosage: 2 TAB(S) PO Q6H
     Dates: start: 20210430
  64. PULMICORT TURBUHALER [Concomitant]
     Active Substance: BUDESONIDE
     Indication: Product used for unknown indication
     Dosage: SUSPENSION 2 ML NEB BID
     Dates: start: 20210430
  65. ALBUTEROL [Concomitant]
     Active Substance: ALBUTEROL
     Indication: Dyspnoea
     Dosage: HFA INHALER 2 PUFF (S) INH Q4H PRN
     Route: 055

REACTIONS (1)
  - Death [Fatal]
